FAERS Safety Report 6172582-3 (Version None)
Quarter: 2009Q2

REPORT INFORMATION
  Report Type: 
  Country: None (occurrence: None)
  Receive Date: 20090428
  Receipt Date: 20090415
  Transmission Date: 20091009
  Serious: Yes (Other)
  Sender: FDA-Public Use
  Company Number: 09-000606

PATIENT
  Age: 21 Year
  Sex: Male

DRUGS (1)
  1. DORYX [Suspect]
     Indication: ACNE
     Dosage: 100 MG, BID, RESPIRATORY
     Route: 055
     Dates: start: 20070101, end: 20090201

REACTIONS (1)
  - GASTRIC ULCER [None]
